FAERS Safety Report 6669607-5 (Version None)
Quarter: 2010Q2

REPORT INFORMATION
  Report Type: 
  Country: None (occurrence: None)
  Receive Date: 20100406
  Receipt Date: 20100326
  Transmission Date: 20101027
  Serious: Yes (Other)
  Sender: FDA-Public Use
  Company Number: US-PURDUE-USA-2010-0042629

PATIENT
  Sex: Male

DRUGS (9)
  1. OXYCONTIN [Suspect]
     Indication: BACK PAIN
     Dosage: 400 MG, DAILY
  2. OXYCONTIN [Suspect]
     Indication: ARTHRALGIA
     Dosage: 240 UNK, UNK
  3. OXYCONTIN [Suspect]
     Indication: PAIN
  4. OXYCODONE HYDROCHLORIDE [Suspect]
     Indication: PAIN
     Dosage: 10 MG, UNK
  5. DEMEROL [Suspect]
     Indication: DRUG USE FOR UNKNOWN INDICATION
     Dosage: 50 MG, UNK
  6. LYRICA [Concomitant]
  7. CYCLOBENZAPRINE [Concomitant]
  8. LUNESTA [Concomitant]
  9. METHADONE HCL [Concomitant]

REACTIONS (22)
  - CONFUSIONAL STATE [None]
  - DENTAL CARIES [None]
  - DISTURBANCE IN ATTENTION [None]
  - DRUG DEPENDENCE [None]
  - DRUG INEFFECTIVE [None]
  - DRUG WITHDRAWAL SYNDROME [None]
  - DYSKINESIA [None]
  - GENERAL PHYSICAL HEALTH DETERIORATION [None]
  - HYPERHIDROSIS [None]
  - INADEQUATE ANALGESIA [None]
  - INTENTIONAL DRUG MISUSE [None]
  - LIBIDO DECREASED [None]
  - MEMORY IMPAIRMENT [None]
  - MENTAL IMPAIRMENT [None]
  - MUSCLE TWITCHING [None]
  - NERVOUSNESS [None]
  - PYREXIA [None]
  - SUICIDAL IDEATION [None]
  - TOOTH LOSS [None]
  - UNEVALUABLE EVENT [None]
  - VISION BLURRED [None]
  - VOMITING [None]
